FAERS Safety Report 6289989-6 (Version None)
Quarter: 2009Q3

REPORT INFORMATION
  Report Type: 
  Country: None (occurrence: None)
  Receive Date: 20090730
  Receipt Date: 20081016
  Transmission Date: 20100115
  Serious: No
  Sender: FDA-Public Use
  Company Number: US-BRISTOL-MYERS SQUIBB COMPANY-14372692

PATIENT
  Age: 82 Year
  Sex: Female
  Weight: 84 kg

DRUGS (7)
  1. COUMADIN [Suspect]
     Indication: THROMBOSIS
     Dates: start: 20080721
  2. ZITHROMAX [Suspect]
     Indication: INFECTION
     Dosage: X2 (5 DAYS EACH TIME). RECENTLY TOOK FOR(5 DAYS) FINISHING THE LAST DOSE 10/12/2008
     Dates: end: 20081012
  3. ZITHROMAX [Suspect]
     Indication: SINUSITIS
     Dosage: X2 (5 DAYS EACH TIME). RECENTLY TOOK FOR(5 DAYS) FINISHING THE LAST DOSE 10/12/2008
     Dates: end: 20081012
  4. TOPROL-XL [Concomitant]
  5. VERAPAMIL [Concomitant]
  6. LIPITOR [Concomitant]
  7. SYNTHROID [Concomitant]

REACTIONS (1)
  - ALOPECIA [None]
